FAERS Safety Report 20337055 (Version 5)
Quarter: 2022Q2

REPORT INFORMATION
  Report Type: Spontaneous
  Country: JP (occurrence: JP)
  Receive Date: 20220114
  Receipt Date: 20220607
  Transmission Date: 20220721
  Serious: Yes (Other)
  Sender: FDA-Public Use
  Company Number: JP-BAUSCH-BL-2022-001213

PATIENT
  Age: 38 Year
  Sex: Female

DRUGS (9)
  1. BRODALUMAB [Suspect]
     Active Substance: BRODALUMAB
     Indication: Pustular psoriasis
     Dosage: UNK, 1X/2 WEEKS
     Route: 058
     Dates: start: 201708
  2. BRODALUMAB [Suspect]
     Active Substance: BRODALUMAB
     Dosage: UNK, 1X/3 WEEKS
     Route: 058
     Dates: start: 201803
  3. BRODALUMAB [Suspect]
     Active Substance: BRODALUMAB
     Dosage: UNK, 1X/3 WEEKS
     Route: 058
     Dates: start: 20220118
  4. BRODALUMAB [Suspect]
     Active Substance: BRODALUMAB
     Route: 058
     Dates: start: 20220503
  5. CLARITIN [Concomitant]
     Active Substance: LORATADINE
     Indication: Product used for unknown indication
     Route: 048
  6. BILASTINE [Concomitant]
     Active Substance: BILASTINE
     Indication: Product used for unknown indication
     Route: 065
  7. HEPARINOID [Concomitant]
     Indication: Product used for unknown indication
     Dosage: EXTERNAL USE
  8. BETAMETHASONE DIPROPIONATE [Concomitant]
     Active Substance: BETAMETHASONE DIPROPIONATE
     Indication: Product used for unknown indication
     Dosage: EXTERNAL USE
  9. CLOBETASOL [Concomitant]
     Active Substance: CLOBETASOL
     Indication: Product used for unknown indication
     Dosage: EXTERNAL USE

REACTIONS (4)
  - Leukopenia [Recovered/Resolved]
  - Haemorrhoids [Unknown]
  - Large intestine polyp [Unknown]
  - COVID-19 [Unknown]

NARRATIVE: CASE EVENT DATE: 20220516
